FAERS Safety Report 14868995 (Version 1)
Quarter: 2018Q2

REPORT INFORMATION
  Report Type: Report from Study
  Country: US (occurrence: US)
  Receive Date: 20180509
  Receipt Date: 20180509
  Transmission Date: 20180711
  Serious: Yes (Other)
  Sender: FDA-Public Use
  Company Number: PHHO2008US017172

PATIENT
  Age: 40 Year
  Sex: Female
  Weight: 57.2 kg

DRUGS (3)
  1. CARBOPLATIN. [Suspect]
     Active Substance: CARBOPLATIN
     Indication: BREAST CANCER METASTATIC
     Dosage: 244 MG, CYCLIC
     Route: 042
     Dates: start: 20061211
  2. PACLITAXEL. [Suspect]
     Active Substance: PACLITAXEL
     Indication: BREAST CANCER METASTATIC
     Dosage: 132 MG, CYCLIC
     Route: 042
     Dates: start: 20061211
  3. TYVERB [Suspect]
     Active Substance: LAPATINIB
     Indication: BREAST CANCER METASTATIC
     Dosage: 1000 MG, QD
     Route: 048
     Dates: start: 20061211

REACTIONS (1)
  - Neutropenia [Recovered/Resolved]

NARRATIVE: CASE EVENT DATE: 20070305
